FAERS Safety Report 16782798 (Version 1)
Quarter: 2019Q3

REPORT INFORMATION
  Report Type: Spontaneous
  Country: JP (occurrence: JP)
  Receive Date: 20190906
  Receipt Date: 20190906
  Transmission Date: 20191005
  Serious: Yes (Life-Threatening, Hospitalization)
  Sender: FDA-Public Use
  Company Number: JP-REGENERON PHARMACEUTICALS, INC.-2019-50805

PATIENT

DRUGS (9)
  1. EYLEA [Suspect]
     Active Substance: AFLIBERCEPT
     Dosage: RIGHT EYE, 0.05 ML, ONCE
     Route: 031
     Dates: start: 20180907, end: 20180907
  2. EYLEA [Suspect]
     Active Substance: AFLIBERCEPT
     Dosage: RIGHT EYE, 0.05 ML, ONCE
     Route: 031
     Dates: start: 20190118, end: 20190118
  3. EYLEA [Suspect]
     Active Substance: AFLIBERCEPT
     Dosage: RIGHT EYE, 0.05 ML, ONCE
     Route: 031
     Dates: start: 20190222, end: 20190222
  4. EYLEA [Suspect]
     Active Substance: AFLIBERCEPT
     Dosage: RIGHT EYE, 0.05 ML, ONCE
     Route: 031
     Dates: start: 20181012, end: 20181012
  5. EYLEA [Suspect]
     Active Substance: AFLIBERCEPT
     Dosage: RIGHT EYE, 0.05 ML, ONCE
     Route: 031
     Dates: start: 20181109, end: 20181109
  6. EYLEA [Suspect]
     Active Substance: AFLIBERCEPT
     Dosage: RIGHT EYE, 0.05 ML, ONCE
     Route: 031
     Dates: start: 20190329
  7. GATIFLO [Suspect]
     Active Substance: GATIFLOXACIN
     Indication: PRODUCT USED FOR UNKNOWN INDICATION
     Dosage: RIGHT EYE
  8. EYLEA [Suspect]
     Active Substance: AFLIBERCEPT
     Indication: AGE-RELATED MACULAR DEGENERATION
     Dosage: RIGHT EYE, 0.05 ML, ONCE
     Route: 031
     Dates: start: 20180810, end: 20180810
  9. EYLEA [Suspect]
     Active Substance: AFLIBERCEPT
     Dosage: RIGHT EYE, 0.05 ML, ONCE
     Route: 031
     Dates: start: 20181214, end: 20181214

REACTIONS (1)
  - Putamen haemorrhage [Not Recovered/Not Resolved]

NARRATIVE: CASE EVENT DATE: 20190411
